FAERS Safety Report 7313629-8 (Version None)
Quarter: 2011Q1

REPORT INFORMATION
  Report Type: 
  Country: None (occurrence: None)
  Receive Date: 20110224
  Receipt Date: 20110224
  Transmission Date: 20110831
  Serious: Yes (Life-Threatening)
  Sender: FDA-Public Use
  Company Number: None

PATIENT
  Age: 64 Year
  Sex: Male
  Weight: 58.9676 kg

DRUGS (2)
  1. TRIAD ALCOHOL PREP PAD ISOPROPYL ALCOHOL 70% TRIAD [Suspect]
     Indication: THERAPEUTIC SKIN CARE TOPICAL
     Dosage: 1 TWICE DAILY CUTANEOUS 3 OR MORE YEARS
     Route: 003
     Dates: start: 20080101, end: 20110220
  2. FUZEON INJECTIONS [Concomitant]

REACTIONS (2)
  - INJECTION SITE SWELLING [None]
  - INJECTION SITE PAIN [None]
